FAERS Safety Report 18573273 (Version 8)
Quarter: 2021Q2

REPORT INFORMATION
  Report Type: Report from Study
  Country: FR (occurrence: FR)
  Receive Date: 20201203
  Receipt Date: 20210406
  Transmission Date: 20210717
  Serious: Yes (Hospitalization, Other)
  Sender: FDA-Public Use
  Company Number: FR-BRISTOL-MYERS SQUIBB COMPANY-BMS-2020-100839

PATIENT
  Age: 61 Year
  Sex: Male
  Weight: 102 kg

DRUGS (5)
  1. IPILIMUMAB [Suspect]
     Active Substance: IPILIMUMAB
     Dosage: 100 MILLIGRAM, Q3WK
     Route: 042
     Dates: start: 20201215
  2. NIVOLUMAB [Suspect]
     Active Substance: NIVOLUMAB
     Indication: METASTATIC MALIGNANT MELANOMA
     Dosage: 1ST 3 INJECTIONS: 3MG/KG, Q3W, AFTER 480MG, Q4W
     Route: 042
     Dates: start: 20201015, end: 20201015
  3. NIVOLUMAB [Suspect]
     Active Substance: NIVOLUMAB
     Dosage: 1ST 3 INJECTIONS: 3MG/KG, Q3W, AFTER 480MG, Q4W
     Route: 042
     Dates: start: 20201215
  4. NIVOLUMAB [Suspect]
     Active Substance: NIVOLUMAB
     Dosage: 1ST 4 INJECTIONS: 3 MG/KG Q3W, 310 MILLIGRAM
     Route: 042
     Dates: start: 20201103, end: 20201124
  5. IPILIMUMAB [Suspect]
     Active Substance: IPILIMUMAB
     Indication: METASTATIC MALIGNANT MELANOMA
     Dosage: 100 MILLIGRAM, Q3WK
     Route: 042
     Dates: start: 20201015, end: 20201124

REACTIONS (1)
  - Diabetes mellitus [Unknown]

NARRATIVE: CASE EVENT DATE: 20201124
